FAERS Safety Report 9801847 (Version 1)
Quarter: 2014Q1

REPORT INFORMATION
  Report Type: Spontaneous
  Country: US (occurrence: US)
  Receive Date: 20140107
  Receipt Date: 20140107
  Transmission Date: 20141002
  Serious: Yes (Other)
  Sender: FDA-Public Use
  Company Number: US-PFIZER INC-2014002873

PATIENT
  Sex: Female

DRUGS (1)
  1. TRIAZOLAM [Suspect]
     Dosage: UNK

REACTIONS (3)
  - Suicidal ideation [Unknown]
  - Hallucination [Unknown]
  - Drug hypersensitivity [Unknown]
